FAERS Safety Report 15729537 (Version 2)
Quarter: 2019Q1

REPORT INFORMATION
  Report Type: Spontaneous
  Country: CN (occurrence: CN)
  Receive Date: 20181217
  Receipt Date: 20190306
  Transmission Date: 20190417
  Serious: Yes (Hospitalization, Other)
  Sender: FDA-Public Use
  Company Number: CN-GLAXOSMITHKLINE-CN2018GSK226340

PATIENT
  Age: 8 Year
  Sex: Male
  Weight: 25 kg

DRUGS (4)
  1. SODIUM VALPROATE AGUETTANT [Suspect]
     Active Substance: VALPROATE SODIUM
     Indication: EPILEPSY
     Dosage: 26 MG/KG, QD
     Route: 048
  2. LEVETIRACETAM. [Suspect]
     Active Substance: LEVETIRACETAM
     Indication: EPILEPSY
     Dosage: 60 MG/KG, QD
     Route: 048
     Dates: start: 201508
  3. LAMICTAL [Suspect]
     Active Substance: LAMOTRIGINE
     Indication: EPILEPSY
     Dosage: UNK
     Route: 048
     Dates: start: 2018
  4. CLONAZEPAM. [Suspect]
     Active Substance: CLONAZEPAM
     Indication: EPILEPSY
     Dosage: 0.12 MG/KG, QD
     Route: 048
     Dates: start: 201510

REACTIONS (8)
  - Rash erythematous [Recovered/Resolved]
  - Scleral discolouration [Recovered/Resolved]
  - Incorrect dose administered [Unknown]
  - Liver injury [Recovered/Resolved]
  - Aspartate aminotransferase increased [Recovered/Resolved]
  - Hospitalisation [Recovered/Resolved]
  - Alanine aminotransferase increased [Recovered/Resolved]
  - Skin discolouration [Recovered/Resolved]
